FAERS Safety Report 4353661-X (Version None)
Quarter: 2004Q2

REPORT INFORMATION
  Report Type: 
  Country: None (occurrence: None)
  Receive Date: 20040430
  Receipt Date: 20040415
  Transmission Date: 20050107
  Serious: Yes (Hospitalization, Other)
  Sender: FDA-Public Use
  Company Number: 96P-163-0041923-00

PATIENT
  Age: 56 Year
  Sex: Male
  Weight: 74 kg

DRUGS (13)
  1. BIAXIN [Suspect]
     Indication: BRONCHITIS ACUTE
     Dosage: 500 MG, BID, PER ORAL
     Route: 048
     Dates: start: 19941001, end: 19941001
  2. ASPIRIN [Concomitant]
  3. EPOGEN [Concomitant]
  4. MULTIVITAMIN [Concomitant]
  5. NIFEDIPINE [Concomitant]
  6. RANITIDINE [Concomitant]
  7. CALCIUM CARBONATE [Concomitant]
  8. METOPROLOL [Concomitant]
  9. ISOSORBIDE [Concomitant]
  10. IRON-DEXTRAN COMPLEX INJ [Concomitant]
  11. LISINOPRIL [Concomitant]
  12. PERSANTIN INJ [Concomitant]
  13. QUININE [Concomitant]

REACTIONS (4)
  - BLOOD ALUMINIUM INCREASED [None]
  - DRUG INTERACTION [None]
  - HALLUCINATION, VISUAL [None]
  - INSOMNIA [None]
